FAERS Safety Report 25235910 (Version 1)
Quarter: 2025Q2

REPORT INFORMATION
  Report Type: Report from Study
  Country: CN (occurrence: CN)
  Receive Date: 20250424
  Receipt Date: 20250424
  Transmission Date: 20250717
  Serious: Yes (Other)
  Sender: ALEXION PHARMACEUTICALS
  Company Number: CN-ASTRAZENECA-202504GLO016593CN

PATIENT
  Age: 3 Year

DRUGS (8)
  1. SELUMETINIB [Suspect]
     Active Substance: SELUMETINIB
     Route: 065
  2. SELUMETINIB [Suspect]
     Active Substance: SELUMETINIB
     Route: 065
  3. OSELTAMIVIR [Concomitant]
     Active Substance: OSELTAMIVIR
     Route: 065
  4. AZITHROMYCIN [Concomitant]
     Active Substance: AZITHROMYCIN
     Route: 065
  5. AZITHROMYCIN [Concomitant]
     Active Substance: AZITHROMYCIN
     Route: 065
  6. AMINOPHENAZONE [Concomitant]
     Active Substance: AMINOPHENAZONE
     Route: 065
  7. BUDESONIDE [Concomitant]
     Active Substance: BUDESONIDE
     Route: 065
  8. BUDESONIDE [Concomitant]
     Active Substance: BUDESONIDE
     Route: 065

REACTIONS (1)
  - Haematochezia [Recovered/Resolved]
